FAERS Safety Report 5245670-3 (Version None)
Quarter: 2007Q1

REPORT INFORMATION
  Report Type: 
  Country: None (occurrence: None)
  Receive Date: 20070223
  Receipt Date: 20070213
  Transmission Date: 20070707
  Serious: Yes (Other)
  Sender: FDA-Public Use
  Company Number: US-PFIZER INC-2007012126

PATIENT
  Age: 80 Year
  Sex: Female
  Weight: 49.9 kg

DRUGS (15)
  1. LIPITOR [Suspect]
     Indication: BLOOD CHOLESTEROL INCREASED
  2. PREVACID [Concomitant]
  3. EVISTA [Concomitant]
  4. COREG [Concomitant]
  5. AVAPRO [Concomitant]
  6. CLONIDINE [Concomitant]
  7. LASIX [Concomitant]
  8. ACETYLSALICYLIC ACID SRT [Concomitant]
  9. VITAMIN CAP [Concomitant]
  10. CALCIUM [Concomitant]
  11. CYMBALTA [Concomitant]
  12. FOSAMAX [Concomitant]
  13. TYLENOL [Concomitant]
  14. FIORINAL [Concomitant]
  15. ALLOPURINOL SODIUM [Concomitant]

REACTIONS (7)
  - ASTHENIA [None]
  - CALCINOSIS [None]
  - DYSPNOEA [None]
  - FATIGUE [None]
  - MUSCULOSKELETAL PAIN [None]
  - SURGERY [None]
  - TREMOR [None]
